FAERS Safety Report 7918714-5 (Version None)
Quarter: 2011Q4

REPORT INFORMATION
  Report Type: 
  Country: None (occurrence: None)
  Receive Date: 20111116
  Receipt Date: 20111107
  Transmission Date: 20120403
  Serious: Yes (Other)
  Sender: FDA-Public Use
  Company Number: US-ASTRAZENECA-2004UW19145

PATIENT
  Age: 65 Year
  Sex: Female
  Weight: 72.6 kg

DRUGS (6)
  1. PLAVIX [Concomitant]
  2. CRESTOR [Concomitant]
  3. ASPIRIN [Concomitant]
  4. ALTACE [Concomitant]
  5. ZOLOFT [Concomitant]
  6. TOPROL-XL [Suspect]
     Route: 048

REACTIONS (12)
  - ADVERSE DRUG REACTION [None]
  - CARDIAC DISORDER [None]
  - NAUSEA [None]
  - BACK PAIN [None]
  - STRESS [None]
  - PAIN [None]
  - BACK DISORDER [None]
  - HYPOKINESIA [None]
  - MALAISE [None]
  - ALOPECIA [None]
  - INSOMNIA [None]
  - GASTRIC DISORDER [None]
